FAERS Safety Report 15705159 (Version 1)
Quarter: 2018Q4

REPORT INFORMATION
  Report Type: Spontaneous
  Country: FR (occurrence: FR)
  Receive Date: 20181210
  Receipt Date: 20181210
  Transmission Date: 20190205
  Serious: Yes (Other)
  Sender: FDA-Public Use
  Company Number: FR-PFIZER INC-2018498951

PATIENT
  Age: 79 Year
  Sex: Male

DRUGS (3)
  1. VFEND [Suspect]
     Active Substance: VORICONAZOLE
     Indication: ASPERGILLUS INFECTION
     Dosage: 200 MG, 1X/DAY
     Route: 048
     Dates: start: 20160106, end: 20160113
  2. CLARITHROMYCINE EG [Interacting]
     Active Substance: CLARITHROMYCIN
     Dosage: 1000 MG, 1X/DAY
     Route: 048
     Dates: start: 20151231, end: 20160112
  3. VFEND [Interacting]
     Active Substance: VORICONAZOLE
     Indication: ASPERGILLUS INFECTION
     Dosage: 200 MG, 1X/DAY
     Route: 042
     Dates: start: 20160104, end: 20160106

REACTIONS (2)
  - Drug interaction [Recovered/Resolved]
  - Hepatocellular injury [Recovered/Resolved]

NARRATIVE: CASE EVENT DATE: 20160108
